FAERS Safety Report 20871606 (Version 2)
Quarter: 2022Q2

REPORT INFORMATION
  Report Type: Report from Study
  Country: CA (occurrence: None)
  Receive Date: 20220525
  Receipt Date: 20220531
  Transmission Date: 20220721
  Serious: Yes (Other)
  Sender: FDA-Public Use
  Company Number: CA-Merck Healthcare KGaA-9324365

PATIENT
  Age: 58 Year
  Sex: Female

DRUGS (1)
  1. REBIF [Suspect]
     Active Substance: INTERFERON BETA-1A
     Indication: Multiple sclerosis
     Dates: start: 19930515

REACTIONS (4)
  - Muscular weakness [Recovering/Resolving]
  - Fall [Recovering/Resolving]
  - Tibia fracture [Recovering/Resolving]
  - Fibula fracture [Recovering/Resolving]

NARRATIVE: CASE EVENT DATE: 20200301
